FAERS Safety Report 10191207 (Version 1)
Quarter: 2014Q2

REPORT INFORMATION
  Report Type: Spontaneous
  Country: GB (occurrence: GB)
  Receive Date: 20140523
  Receipt Date: 20140523
  Transmission Date: 20141212
  Serious: Yes (Other)
  Sender: FDA-Public Use
  Company Number: GB-ACCORD-023821

PATIENT
  Age: 79 Year
  Sex: Male

DRUGS (10)
  1. CLOPIDOGREL [Suspect]
     Indication: PERCUTANEOUS CORONARY INTERVENTION
     Route: 048
     Dates: start: 201305
  2. ELIQUIS [Suspect]
     Indication: ATRIAL FIBRILLATION
     Route: 048
     Dates: start: 201307, end: 20140328
  3. ASPIRIN [Suspect]
     Indication: PERCUTANEOUS CORONARY INTERVENTION
     Route: 048
     Dates: start: 201306
  4. ATORVASTATIN [Concomitant]
  5. RAMIPRIL [Concomitant]
  6. ALFUZOSIN [Concomitant]
  7. PREDNISOLONE [Concomitant]
  8. AMLODIPINE [Concomitant]
  9. BISOPROLOL [Concomitant]
  10. LANSOPRAZOLE [Concomitant]

REACTIONS (4)
  - Ecchymosis [Not Recovered/Not Resolved]
  - Purpura [Not Recovered/Not Resolved]
  - Contraindication to medical treatment [Unknown]
  - Haemorrhage [Not Recovered/Not Resolved]
